FAERS Safety Report 20233827 (Version 1)
Quarter: 2021Q4

REPORT INFORMATION
  Report Type: Spontaneous
  Country: US (occurrence: US)
  Receive Date: 20211227
  Receipt Date: 20211227
  Transmission Date: 20220303
  Serious: Yes (Death, Life-Threatening, Hospitalization, Other)
  Sender: FDA-Public Use
  Company Number: US-MLMSERVICE-20211209-3262019-1

PATIENT
  Age: 27 Year
  Sex: Male

DRUGS (1)
  1. GENTAMICIN SULFATE [Suspect]
     Active Substance: GENTAMICIN SULFATE
     Indication: Product used for unknown indication

REACTIONS (4)
  - Cardiac failure congestive [Fatal]
  - Nephropathy toxic [Fatal]
  - End stage renal disease [Fatal]
  - Arrhythmia [Fatal]
